FAERS Safety Report 8281331-4 (Version None)
Quarter: 2012Q2

REPORT INFORMATION
  Report Type: 
  Country: None (occurrence: None)
  Receive Date: 20120413
  Receipt Date: 20120410
  Transmission Date: 20120825
  Serious: No
  Sender: FDA-Public Use
  Company Number: US-PFIZER INC-2012053151

PATIENT
  Sex: Male
  Weight: 130 kg

DRUGS (1)
  1. CHANTIX [Suspect]
     Indication: SMOKING CESSATION THERAPY
     Dosage: 0.5 MG, 1X/DAY
     Route: 048
     Dates: start: 20120223

REACTIONS (4)
  - DRUG INEFFECTIVE [None]
  - ABNORMAL BEHAVIOUR [None]
  - FRUSTRATION [None]
  - TOBACCO USER [None]
